FAERS Safety Report 8020038-5 (Version None)
Quarter: 2012Q1

REPORT INFORMATION
  Report Type: 
  Country: None (occurrence: None)
  Receive Date: 20120103
  Receipt Date: 20111220
  Transmission Date: 20120608
  Serious: Yes (Hospitalization)
  Sender: FDA-Public Use
  Company Number: DE-TEVA-314923GER

PATIENT
  Age: 47 Year
  Sex: Female
  Weight: 54 kg

DRUGS (5)
  1. FLUOROURACIL [Suspect]
     Dates: start: 20110928
  2. FLUOROURACIL [Suspect]
     Dates: start: 20110928
  3. LEUCOVORIN CALCIUM [Suspect]
     Dates: start: 20110928
  4. SUNITINIB MALATE; PLACEBO [Suspect]
     Dates: start: 20110928
  5. IRINOTECAN HCL [Suspect]
     Dates: start: 20110928

REACTIONS (1)
  - PNEUMONIA [None]
